FAERS Safety Report 6748139-X (Version None)
Quarter: 2010Q2

REPORT INFORMATION
  Report Type: 
  Country: None (occurrence: None)
  Receive Date: 20100531
  Receipt Date: 20100524
  Transmission Date: 20101027
  Serious: Yes (Other)
  Sender: FDA-Public Use
  Company Number: US-JNJFOC-20100509883

PATIENT
  Age: 26 Year
  Sex: Female
  Weight: 57.61 kg

DRUGS (2)
  1. TOPAMAX [Suspect]
     Indication: MIGRAINE PROPHYLAXIS
     Dosage: 25 MG+25 MG
     Route: 048
  2. DARVOCET [Concomitant]
     Indication: PAIN
     Route: 048

REACTIONS (3)
  - EXOPHTHALMOS [None]
  - FACIAL PAIN [None]
  - SINUS HEADACHE [None]
